FAERS Safety Report 4924512-7 (Version None)
Quarter: 2006Q1

REPORT INFORMATION
  Report Type: 
  Country: None (occurrence: None)
  Receive Date: 20060222
  Receipt Date: 20060214
  Transmission Date: 20060701
  Serious: Yes (Other)
  Sender: FDA-Public Use
  Company Number: 2006022037

PATIENT
  Sex: Female

DRUGS (1)
  1. GENOTROPIN [Suspect]
     Indication: HYPOPITUITARISM
     Dosage: 5 MG, SUBCUTANEOUS
     Route: 058
     Dates: start: 20000101, end: 20020101

REACTIONS (2)
  - GERM CELL CANCER [None]
  - MALIGNANT PITUITARY TUMOUR [None]
